FAERS Safety Report 9145353 (Version 2)
Quarter: 2013Q1

REPORT INFORMATION
  Report Type: Spontaneous
  Country: US (occurrence: US)
  Receive Date: 20130307
  Receipt Date: 20130325
  Transmission Date: 20140127
  Serious: Yes (Other)
  Sender: FDA-Public Use
  Company Number: US-CELGENEUS-163-21880-13030260

PATIENT
  Sex: Male

DRUGS (1)
  1. REVLIMID [Suspect]
     Indication: PLASMA CELL MYELOMA
     Dosage: 10 MILLIGRAM
     Route: 048
     Dates: start: 201301, end: 20130208

REACTIONS (7)
  - Cardiac failure congestive [Unknown]
  - Ear pain [Unknown]
  - Headache [Unknown]
  - Discomfort [Unknown]
  - Fatigue [Unknown]
  - Pneumonia [Unknown]
  - Dizziness [Unknown]
